FAERS Safety Report 6772199-3 (Version None)
Quarter: 2010Q2

REPORT INFORMATION
  Report Type: 
  Country: None (occurrence: None)
  Receive Date: 20100616
  Receipt Date: 20100609
  Transmission Date: 20101027
  Serious: Yes (Life-Threatening)
  Sender: FDA-Public Use
  Company Number: TH-GILEAD-2010-0029523

PATIENT
  Sex: Male
  Weight: 67 kg

DRUGS (4)
  1. TRUVADA [Suspect]
     Indication: HIV INFECTION
  2. EFAVIRENZ [Suspect]
     Indication: HIV INFECTION
     Dates: end: 20100430
  3. RALTEGRAVIR [Concomitant]
     Indication: HIV INFECTION
  4. MARAVIROC [Concomitant]
     Indication: HIV INFECTION

REACTIONS (4)
  - ALANINE AMINOTRANSFERASE INCREASED [None]
  - ASPARTATE AMINOTRANSFERASE INCREASED [None]
  - GAMMA-GLUTAMYLTRANSFERASE INCREASED [None]
  - RASH MACULO-PAPULAR [None]
